FAERS Safety Report 12983264 (Version 2)
Quarter: 2017Q1

REPORT INFORMATION
  Report Type: Spontaneous
  Country: FR (occurrence: FR)
  Receive Date: 20161129
  Receipt Date: 20170118
  Transmission Date: 20170428
  Serious: Yes (Disabling, Other)
  Sender: FDA-Public Use
  Company Number: FR-JNJFOC-20161123910

PATIENT
  Age: 70 Year
  Sex: Female

DRUGS (3)
  1. XARELTO [Suspect]
     Active Substance: RIVAROXABAN
     Indication: THROMBOSIS
     Route: 048
     Dates: start: 20161007, end: 20161025
  2. XARELTO [Suspect]
     Active Substance: RIVAROXABAN
     Indication: HIP SURGERY
     Route: 048
     Dates: start: 20161007, end: 20161025
  3. VITAMIN D [Concomitant]
     Active Substance: CHOLECALCIFEROL
     Route: 065

REACTIONS (11)
  - Nausea [Recovered/Resolved]
  - Post procedural haematoma [Not Recovered/Not Resolved]
  - Haematoma [Unknown]
  - Oedema peripheral [Not Recovered/Not Resolved]
  - Dry mouth [Recovered/Resolved]
  - Haematochezia [Recovered/Resolved]
  - Gait disturbance [Unknown]
  - Abdominal pain upper [Recovered/Resolved]
  - Pruritus [Recovered/Resolved]
  - Asthenia [Recovered/Resolved]
  - Erythema [Recovered/Resolved]

NARRATIVE: CASE EVENT DATE: 20161019
